FAERS Safety Report 9104219 (Version 3)
Quarter: 2013Q1

REPORT INFORMATION
  Report Type: Spontaneous
  Country: JP (occurrence: JP)
  Receive Date: 20130219
  Receipt Date: 20130307
  Transmission Date: 20140127
  Serious: Yes (Life-Threatening, Hospitalization)
  Sender: FDA-Public Use
  Company Number: JP-ROCHE-1192203

PATIENT
  Age: 85 Year
  Sex: Male
  Weight: 47 kg

DRUGS (7)
  1. TAMIFLU [Suspect]
     Indication: INFLUENZA
     Route: 048
     Dates: start: 20130123
  2. BAYASPIRIN [Concomitant]
     Indication: CEREBRAL INFARCTION
     Dosage: DOSAGE IS UNCERTAIN.
     Route: 048
  3. PRAVASTATIN SODIUM [Concomitant]
     Indication: HYPERLIPIDAEMIA
     Dosage: DOSAGE IS UNCERTAIN.
     Route: 048
  4. TAKEPRON [Concomitant]
     Indication: PROPHYLAXIS
     Dosage: DOSAGE IS UNCERTAIN.
     Route: 048
  5. CIBENOL [Concomitant]
     Indication: EXTRASYSTOLES
     Dosage: DOSAGE IS UNCERTAIN.
     Route: 048
  6. CEROCRAL [Concomitant]
     Indication: CEREBRAL INFARCTION
     Route: 048
  7. MYONAL [Concomitant]
     Route: 048

REACTIONS (2)
  - Abnormal behaviour [Recovered/Resolved]
  - Pneumonia bacterial [Recovered/Resolved]
